FAERS Safety Report 5161136-3 (Version None)
Quarter: 2006Q4

REPORT INFORMATION
  Report Type: 
  Country: None (occurrence: None)
  Receive Date: 20061121
  Receipt Date: 20061107
  Transmission Date: 20070319
  Serious: Yes (Death)
  Sender: FDA-Public Use
  Company Number: 2006137312

PATIENT
  Age: 28 Year
  Sex: Female
  Weight: 40 kg

DRUGS (6)
  1. VFEND [Suspect]
     Dosage: 400 MG (2 IN 1 D), INTRAVENOUS
     Route: 042
     Dates: start: 20020221, end: 20020222
  2. MORPHINE [Suspect]
     Dosage: 48 MG (DAILY), INTRAVENOUS
     Route: 042
     Dates: start: 20020220, end: 20020222
  3. CIPROFLOXACIN [Suspect]
     Dosage: 1200 MG (DAILY), INTRAVENOUS
     Route: 042
     Dates: start: 20020212, end: 20020212
  4. MIDAZOLAM [Suspect]
     Dosage: 48 MG (DAILY), INTRAVENOUS
     Route: 042
     Dates: start: 20020220, end: 20020222
  5. PAVULON [Suspect]
     Dosage: 24 MG (DAILY), INTRAVENOUS
     Route: 042
     Dates: start: 20020222, end: 20020222
  6. CEFTAZIDIME PENTAHYDRATE [Suspect]
     Dosage: 6 G (DAILY), INTRAVENOUS
     Route: 042
     Dates: start: 20020212, end: 20020222

REACTIONS (2)
  - DISEASE PROGRESSION [None]
  - LIFE SUPPORT [None]
